APPROVED DRUG PRODUCT: RALOXIFENE HYDROCHLORIDE
Active Ingredient: RALOXIFENE HYDROCHLORIDE
Strength: 60MG
Dosage Form/Route: TABLET;ORAL
Application: A204491 | Product #001 | TE Code: AB
Applicant: GLENMARK PHARMACEUTICALS LTD
Approved: Mar 22, 2016 | RLD: No | RS: No | Type: RX